FAERS Safety Report 9640628 (Version 1)
Quarter: 2013Q4

REPORT INFORMATION
  Report Type: Spontaneous
  Country: US (occurrence: None)
  Receive Date: 20131021
  Receipt Date: 20131021
  Transmission Date: 20140711
  Serious: Yes (Death)
  Sender: FDA-Public Use
  Company Number: 1713747-2013-99962

PATIENT
  Age: 69 Year
  Sex: Female
  Weight: 150 kg

DRUGS (4)
  1. PERITONEAL DIALYSIS SOLUTION (LACTATE- G 1.5%) [Suspect]
     Indication: RENAL FAILURE CHRONIC
  2. PERITONEAL DIALYSIS SOLUTION (LACTATE- G 1.5%) [Suspect]
     Indication: PERITONEAL DIALYSIS
  3. LIBERTY CYCLER [Concomitant]
  4. LIBERTY TUBING [Concomitant]

REACTIONS (2)
  - Unresponsive to stimuli [None]
  - Cardio-respiratory arrest [None]
